FAERS Safety Report 9530804 (Version 1)
Quarter: 2013Q1

REPORT INFORMATION
  Report Type: Spontaneous
  Country: GB (occurrence: None)
  Receive Date: 20130315
  Receipt Date: 20130315
  Transmission Date: 20140127
  Serious: Yes (Hospitalization)
  Sender: FDA-Public Use
  Company Number: GB-JNJFOC-20121211344

PATIENT
  Age: 71 Year
  Sex: Male
  Weight: 110.7 kg

DRUGS (8)
  1. IBUPROFEN [Suspect]
     Indication: PRODUCT USED FOR UNKNOWN INDICATION
     Dates: start: 2000, end: 20100703
  2. ASPIRIN [Suspect]
     Indication: PRODUCT USED FOR UNKNOWN INDICATION
     Dates: start: 1997, end: 20120703
  3. PLAVIX [Suspect]
     Indication: PRODUCT USED FOR UNKNOWN INDICATION
     Dates: start: 200910, end: 20100703
  4. ALLOPURINOL [Concomitant]
  5. AMLODIPINE [Concomitant]
  6. ATORVASTATIN [Concomitant]
  7. DALCETRAPIB (INVESTIGATIONAL DRUG) [Concomitant]
  8. LOPRESSOR (METOPROLOL TARTRATE) [Concomitant]

REACTIONS (1)
  - Gastrointestinal haemorrhage [None]
